FAERS Safety Report 7179082-2 (Version None)
Quarter: 2010Q4

REPORT INFORMATION
  Report Type: 
  Country: None (occurrence: None)
  Receive Date: 20101221
  Receipt Date: 20101213
  Transmission Date: 20110411
  Serious: No
  Sender: FDA-Public Use
  Company Number: US-PFIZER INC-2010171494

PATIENT

DRUGS (1)
  1. TIKOSYN [Suspect]

REACTIONS (3)
  - FLUSHING [None]
  - NAUSEA [None]
  - RASH [None]
